FAERS Safety Report 17080687 (Version 1)
Quarter: 2019Q4

REPORT INFORMATION
  Report Type: Spontaneous
  Country: IT (occurrence: IT)
  Receive Date: 20191127
  Receipt Date: 20191127
  Transmission Date: 20200122
  Serious: Yes (Other)
  Sender: FDA-Public Use
  Company Number: IT-TEVA-2019-IT-1141897

PATIENT
  Age: 70 Year

DRUGS (3)
  1. ALLOPURINOL. [Suspect]
     Active Substance: ALLOPURINOL
     Dates: start: 20191011
  2. KARVEZIDE [Concomitant]
     Active Substance: HYDROCHLOROTHIAZIDE\IRBESARTAN
  3. FLUIMUCIL [Suspect]
     Active Substance: ACETYLCYSTEINE
     Dates: start: 20191011

REACTIONS (2)
  - Skin erosion [Unknown]
  - Pyrexia [Unknown]

NARRATIVE: CASE EVENT DATE: 20191015
